FAERS Safety Report 23977827 (Version 4)
Quarter: 2025Q4

REPORT INFORMATION
  Report Type: Report from Study
  Country: KR (occurrence: KR)
  Receive Date: 20240614
  Receipt Date: 20251024
  Transmission Date: 20260117
  Serious: Yes (Death, Hospitalization, Other)
  Sender: BAXTER
  Company Number: KR-BAXTER-2024BAX019526

PATIENT
  Age: 74 Year
  Sex: Male
  Weight: 53.7 kg

DRUGS (43)
  1. DOXORUBICIN [Suspect]
     Active Substance: DOXORUBICIN
     Indication: Diffuse large B-cell lymphoma stage III
     Dosage: 70 MG, EVERY 3 WEEKS
     Route: 042
     Dates: start: 20240321, end: 20240524
  2. CYCLOPHOSPHAMIDE [Suspect]
     Active Substance: CYCLOPHOSPHAMIDE
     Indication: Diffuse large B-cell lymphoma stage III
     Dosage: 1050 MG, EVERY 3 WEEKS
     Route: 042
     Dates: start: 20240321, end: 20240524
  3. EPCORITAMAB [Suspect]
     Active Substance: EPCORITAMAB
     Indication: Diffuse large B-cell lymphoma stage III
     Dosage: UNK, DRUG NOT ADMINISTERED
     Route: 065
  4. RITUXIMAB [Suspect]
     Active Substance: RITUXIMAB
     Indication: Diffuse large B-cell lymphoma stage III
     Dosage: 525 MG, EVERY 3 WEEKS
     Route: 042
     Dates: start: 20240321, end: 20240524
  5. VINCRISTINE [Suspect]
     Active Substance: VINCRISTINE
     Indication: Diffuse large B-cell lymphoma stage III
     Dosage: 2 MG, EVERY 3 WEEKS
     Route: 042
     Dates: start: 20240321, end: 20240524
  6. PREDNISONE [Suspect]
     Active Substance: PREDNISONE
     Indication: Diffuse large B-cell lymphoma stage III
     Dosage: 100 MG DAILY C1-6, DAY 1-5, EVERY 1 DAYS
     Route: 048
     Dates: start: 20240321, end: 20240324
  7. DEXAMETHASONE [Suspect]
     Active Substance: DEXAMETHASONE
     Indication: Diffuse large B-cell lymphoma stage III
     Dosage: 15 MG, C2-4, DAY 1, EVERY 3 WEEKS
     Route: 042
     Dates: start: 20240411, end: 20240524
  8. DEXAMETHASONE [Suspect]
     Active Substance: DEXAMETHASONE
     Dosage: 16 MG, C2-4, DAY 2-4, EVERY 1 DAY
     Route: 048
     Dates: start: 20240412, end: 20240527
  9. Fentadur [Concomitant]
     Indication: Lymph node pain
     Dosage: 1 DOSAGE FORM, EVERY 3 DAYS
     Route: 065
     Dates: start: 20240315
  10. Fentadur [Concomitant]
     Indication: Prophylaxis
  11. Fentadur [Concomitant]
     Indication: Pain prophylaxis
  12. PIPERACILLIN SODIUM\TAZOBACTAM SODIUM [Concomitant]
     Active Substance: PIPERACILLIN SODIUM\TAZOBACTAM SODIUM
     Indication: Abdominal abscess
     Dosage: 4.5 G, 3/DAYS
     Route: 065
     Dates: start: 20240416, end: 20240509
  13. PIPERACILLIN SODIUM\TAZOBACTAM SODIUM [Concomitant]
     Active Substance: PIPERACILLIN SODIUM\TAZOBACTAM SODIUM
     Indication: Infection prophylaxis
     Dosage: 4.5 G, 3/DAYS
     Dates: start: 20240523
  14. Fullgram [Concomitant]
     Indication: Abdominal abscess
     Dosage: 1 AMP, 3/DAYS
     Route: 065
     Dates: start: 20240416, end: 20240509
  15. MORPHINE SULFATE [Concomitant]
     Active Substance: MORPHINE SULFATE
     Indication: Lymph node pain
     Dosage: 5 MG, AS NECESSARY
     Route: 065
     Dates: start: 20240318, end: 20240530
  16. MORPHINE SULFATE [Concomitant]
     Active Substance: MORPHINE SULFATE
     Indication: Abdominal pain
  17. MORPHINE SULFATE [Concomitant]
     Active Substance: MORPHINE SULFATE
     Indication: Periorbital pain
  18. MORPHINE SULFATE [Concomitant]
     Active Substance: MORPHINE SULFATE
     Indication: Back pain
  19. MORPHINE SULFATE [Concomitant]
     Active Substance: MORPHINE SULFATE
     Indication: Flank pain
  20. DEXAMETHASONE [Concomitant]
     Active Substance: DEXAMETHASONE
     Indication: Chemotherapy side effect prophylaxis
     Dosage: 15 MG, EVERY 3 WEEKS
     Route: 065
     Dates: start: 20240411, end: 20240524
  21. MEGACE [Concomitant]
     Active Substance: MEGESTROL ACETATE
     Indication: Decreased appetite
     Dosage: 5 ML, EVERY 1 DAYS
     Route: 065
     Dates: start: 20240315, end: 20240523
  22. Omps [Concomitant]
     Indication: Gastrooesophageal reflux prophylaxis
     Dosage: 40 MG, EVERY 1 DAYS
     Route: 065
     Dates: start: 20240321, end: 20240530
  23. ATIVAN [Concomitant]
     Active Substance: LORAZEPAM
     Indication: Prophylaxis of nausea and vomiting
     Dosage: 1 MG, EVERY 3 WEEKS
     Route: 065
     Dates: start: 20240321, end: 20240524
  24. Akynzeo [Concomitant]
     Indication: Chemotherapy side effect prophylaxis
     Dosage: 1 DOSAGE FORM, EVERY 3 WEEKS
     Route: 065
     Dates: start: 20240321, end: 20240524
  25. FOLIC ACID [Concomitant]
     Active Substance: FOLIC ACID
     Indication: Antifungal prophylaxis
     Dosage: 1 MG, EVERY 1 DAYS
     Route: 065
     Dates: start: 20240321
  26. SULFAMETHOXAZOLE\TRIMETHOPRIM [Concomitant]
     Active Substance: SULFAMETHOXAZOLE\TRIMETHOPRIM
     Indication: Antifungal prophylaxis
     Dosage: 480 MG, EVERY 1 DAYS
     Route: 065
     Dates: start: 20240321
  27. Setopen [Concomitant]
     Indication: Antipyresis
     Dosage: 650 MG, EVERY 3 WEEKS
     Route: 065
     Dates: start: 20240321, end: 20240524
  28. Setopen [Concomitant]
     Indication: Pain prophylaxis
  29. Setopen [Concomitant]
     Indication: Chemotherapy side effect prophylaxis
  30. NEULASTA [Concomitant]
     Active Substance: PEGFILGRASTIM
     Indication: Prophylaxis
     Dosage: 6 MG, EVERY 3 WEEKS
     Route: 065
     Dates: start: 20240322, end: 20240525
  31. NEULASTA [Concomitant]
     Active Substance: PEGFILGRASTIM
     Indication: Neutropenia
  32. NYSTATIN [Concomitant]
     Active Substance: NYSTATIN
     Indication: Prophylaxis
     Dosage: 5 ML, 3/DAYS
     Route: 065
     Dates: start: 20240401
  33. Biotop d [Concomitant]
     Indication: Constipation
     Dosage: 1 DOSAGE FORM, 2/DAYS
     Route: 065
     Dates: start: 20240528
  34. DICLOFENAC DEANOL [Concomitant]
     Active Substance: DICLOFENAC DEANOL
     Indication: Abdominal pain
     Dosage: 90 MG, AS NECESSARY
     Route: 065
     Dates: start: 20240319
  35. DICLOFENAC DEANOL [Concomitant]
     Active Substance: DICLOFENAC DEANOL
     Indication: Periorbital pain
  36. DICLOFENAC DEANOL [Concomitant]
     Active Substance: DICLOFENAC DEANOL
     Indication: Back pain
  37. DICLOFENAC DEANOL [Concomitant]
     Active Substance: DICLOFENAC DEANOL
     Indication: Flank pain
  38. HUMULIN R [Concomitant]
     Active Substance: INSULIN HUMAN
     Indication: Hyperglycaemia
     Dosage: 2 IU, EVERY 1 DAY
     Route: 065
     Dates: start: 20240526
  39. EDOXABAN TOSYLATE [Concomitant]
     Active Substance: EDOXABAN TOSYLATE
     Indication: Pulmonary embolism
     Dosage: 30 MG, EVERY 1 DAYS
     Route: 065
     Dates: start: 20240523
  40. Mago [Concomitant]
     Indication: Constipation
     Dosage: 500 MG, EVERY 1 DAYS
     Route: 065
     Dates: start: 20240528
  41. Peniramin [Concomitant]
     Indication: Antiallergic therapy
     Dosage: 4 MG, AS NECESSARY
     Route: 065
     Dates: start: 20240420
  42. Peniramin [Concomitant]
     Indication: Premedication
  43. Uni infusion [Concomitant]
     Indication: Hepatobiliary disorder prophylaxis
     Dosage: 30 ML, EVERY 1 DAYS
     Route: 065
     Dates: start: 20240523

REACTIONS (2)
  - Sepsis [Fatal]
  - Sepsis [Recovered/Resolved]

NARRATIVE: CASE EVENT DATE: 20240530
